FAERS Safety Report 22707370 (Version 4)
Quarter: 2023Q4

REPORT INFORMATION
  Report Type: Spontaneous
  Country: US (occurrence: US)
  Receive Date: 20230714
  Receipt Date: 20231114
  Transmission Date: 20240109
  Serious: Yes (Other)
  Sender: FDA-Public Use
  Company Number: US-BRISTOL-MYERS SQUIBB COMPANY-2023-099529

PATIENT
  Age: 73 Year
  Sex: Female

DRUGS (1)
  1. LENALIDOMIDE [Suspect]
     Active Substance: LENALIDOMIDE
     Indication: Plasma cell myeloma
     Dosage: FREQUENCY : TAKE 1 CAPSULE (10MG) BY MOUTH WHOLE WITH WATER DAILY FOR 21 DAYS EVERY 28 DAY CYCLE. DO
     Route: 048
     Dates: start: 20230619

REACTIONS (4)
  - Pruritus [Recovered/Resolved]
  - Throat irritation [Recovered/Resolved]
  - Pain in jaw [Recovered/Resolved]
  - Pain in extremity [Recovered/Resolved]
